FAERS Safety Report 7596269-5 (Version None)
Quarter: 2011Q3

REPORT INFORMATION
  Report Type: 
  Country: None (occurrence: None)
  Receive Date: 20110707
  Receipt Date: 20110706
  Transmission Date: 20111222
  Serious: No
  Sender: FDA-Public Use
  Company Number: US-TEVA-289494USA

PATIENT
  Sex: Female

DRUGS (1)
  1. COPAXONE [Suspect]
     Indication: MULTIPLE SCLEROSIS
     Dosage: 20 MILLIGRAM;
     Route: 058
     Dates: start: 20070101, end: 20110701

REACTIONS (8)
  - NAUSEA [None]
  - FEELING ABNORMAL [None]
  - CHILLS [None]
  - CHEST PAIN [None]
  - MUSCULOSKELETAL STIFFNESS [None]
  - SINUS DISORDER [None]
  - CHEST DISCOMFORT [None]
  - DYSPNOEA [None]
